FAERS Safety Report 20870199 (Version 1)
Quarter: 2022Q2

REPORT INFORMATION
  Report Type: Spontaneous
  Country: NL (occurrence: NL)
  Receive Date: 20220525
  Receipt Date: 20220525
  Transmission Date: 20220721
  Serious: Yes (Hospitalization, Other)
  Sender: FDA-Public Use
  Company Number: NL-SA-2022SA169154

PATIENT
  Age: 65 Year
  Sex: Female

DRUGS (4)
  1. PREDNISONE [Suspect]
     Active Substance: PREDNISONE
     Indication: Autoimmune haemolytic anaemia
     Dosage: 100 MILLIGRAM, ONCE A DAY (100 MG, QD (HIGH DOSE))
     Route: 065
  2. IBRUTINIB [Suspect]
     Active Substance: IBRUTINIB
     Indication: Chronic lymphocytic leukaemia
     Dosage: UNK
     Route: 065
  3. COTRIMOXAZOLE [Concomitant]
     Active Substance: SULFAMETHOXAZOLE\TRIMETHOPRIM
     Indication: Antifungal prophylaxis
     Dosage: UNK
     Route: 065
  4. LEVOFLOXACIN [Concomitant]
     Active Substance: LEVOFLOXACIN
     Indication: Antifungal prophylaxis
     Dosage: UNK
     Route: 048

REACTIONS (7)
  - Aspergillus infection [Recovered/Resolved]
  - Cerebral aspergillosis [Recovered/Resolved]
  - Confusional state [Recovered/Resolved]
  - Cough [Recovered/Resolved]
  - Hallucination, visual [Recovered/Resolved]
  - Opportunistic infection [Recovered/Resolved]
  - Pyrexia [Recovered/Resolved]
